FAERS Safety Report 8172906-1 (Version None)
Quarter: 2012Q1

REPORT INFORMATION
  Report Type: 
  Country: None (occurrence: None)
  Receive Date: 20120223
  Receipt Date: 20120209
  Transmission Date: 20120608
  Serious: Yes (Other)
  Sender: FDA-Public Use
  Company Number: 1000028514

PATIENT
  Age: 55 Year
  Sex: Female

DRUGS (2)
  1. PIROXICAM(PIROXICAM)(PIROXICAM) [Concomitant]
  2. CITALOPRAM HYDROBROMIDE [Suspect]
     Indication: DEPRESSION
     Dosage: 10 MG (10 MG, 1 IN 1 D),0RAL
     Route: 048
     Dates: start: 20120129, end: 20120130

REACTIONS (1)
  - HYPERSENSITIVITY [None]
